FAERS Safety Report 19972709 (Version 2)
Quarter: 2022Q2

REPORT INFORMATION
  Report Type: Spontaneous
  Country: US (occurrence: US)
  Receive Date: 20211020
  Receipt Date: 20220510
  Transmission Date: 20220721
  Serious: No
  Sender: FDA-Public Use
  Company Number: US-LUPIN PHARMACEUTICALS INC.-2021-19428

PATIENT
  Sex: Female

DRUGS (2)
  1. ALBUTEROL SULFATE [Suspect]
     Active Substance: ALBUTEROL SULFATE
     Indication: Product used for unknown indication
     Dosage: UNK, PRN (2 PUFFS EVERY 4 TO 6 HOURS AS NEEDED)
     Dates: start: 20210829
  2. ALBUTEROL SULFATE [Suspect]
     Active Substance: ALBUTEROL SULFATE
     Dosage: UNK, PRN (2 PUFFS EVERY 4 TO 6 HOURS AS NEEDED)
     Dates: start: 20210727

REACTIONS (4)
  - Device delivery system issue [Unknown]
  - Product dose omission issue [Unknown]
  - Device information output issue [Unknown]
  - No adverse event [Unknown]
